FAERS Safety Report 6191760-0 (Version None)
Quarter: 2009Q2

REPORT INFORMATION
  Report Type: 
  Country: None (occurrence: None)
  Receive Date: 20090515
  Receipt Date: 20090504
  Transmission Date: 20091009
  Serious: Yes (Other)
  Sender: FDA-Public Use
  Company Number: US-PFIZER INC-2009208506

PATIENT
  Age: 61 Year
  Sex: Female
  Weight: 92.971 kg

DRUGS (6)
  1. LYRICA [Suspect]
     Indication: FIBROMYALGIA
     Dosage: 50 MG, 1X/DAY
  2. GLUCOPHAGE [Concomitant]
     Dosage: UNK
  3. DYAZIDE [Concomitant]
     Dosage: UNK
  4. LEVOTHYROXINE [Concomitant]
     Dosage: UNK
  5. CYTOMEL [Concomitant]
     Dosage: UNK
  6. REQUIP [Concomitant]
     Dosage: UNK

REACTIONS (6)
  - ABDOMINAL DISTENSION [None]
  - ASTHENIA [None]
  - DISTURBANCE IN ATTENTION [None]
  - DRUG INEFFECTIVE [None]
  - THYROID CANCER [None]
  - WEIGHT FLUCTUATION [None]
